FAERS Safety Report 24361565 (Version 1)
Quarter: 2024Q3

REPORT INFORMATION
  Report Type: Spontaneous
  Country: US (occurrence: None)
  Receive Date: 20240924
  Receipt Date: 20240924
  Transmission Date: 20241016
  Serious: Yes (Hospitalization)
  Sender: Public
  Company Number: None

PATIENT
  Sex: Female

DRUGS (4)
  1. GLATOPA [Suspect]
     Active Substance: GLATIRAMER ACETATE
     Indication: Multiple sclerosis
     Dosage: 40MG 3 TIMES A WEEK SQ?
     Route: 058
     Dates: start: 202408
  2. DALFA^v1PRIDINE ER [Concomitant]
  3. UNSPECIFIED INGREDIENT [Concomitant]
     Active Substance: UNSPECIFIED INGREDIENT
  4. GLATIRAMER ACETATE [Concomitant]
     Active Substance: GLATIRAMER ACETATE

REACTIONS (8)
  - Kidney infection [None]
  - Cystitis [None]
  - Blood sodium decreased [None]
  - Blood magnesium decreased [None]
  - Hypertension [None]
  - Fall [None]
  - Therapy interrupted [None]
  - Multiple sclerosis relapse [None]
